FAERS Safety Report 5619528-1 (Version None)
Quarter: 2008Q1

REPORT INFORMATION
  Report Type: 
  Country: None (occurrence: None)
  Receive Date: 20080114
  Receipt Date: 20070927
  Transmission Date: 20080703
  Serious: Yes (Other)
  Sender: FDA-Public Use
  Company Number: SP01607

PATIENT
  Age: 55 Year
  Sex: Female
  Weight: 54.4316 kg

DRUGS (2)
  1. OSMOPREP [Suspect]
     Indication: COLONOSCOPY
     Dosage: 12 GM,ORAL
     Route: 048
     Dates: start: 20070923, end: 20070923
  2. LEVOTHYROXINE SODIUM [Concomitant]

REACTIONS (4)
  - LIP SWELLING [None]
  - ORAL PRURITUS [None]
  - SWOLLEN TONGUE [None]
  - URTICARIA [None]
